FAERS Safety Report 18380350 (Version 2)
Quarter: 2020Q4

REPORT INFORMATION
  Report Type: Report from Study
  Country: ES (occurrence: ES)
  Receive Date: 20201013
  Receipt Date: 20201108
  Transmission Date: 20210114
  Serious: Yes (Hospitalization)
  Sender: FDA-Public Use
  Company Number: ES-BEH-2020123206

PATIENT
  Age: 61 Year
  Sex: Male
  Weight: 70 kg

DRUGS (4)
  1. RIASTAP [Suspect]
     Active Substance: FIBRINOGEN HUMAN
     Indication: CIRRHOSIS ALCOHOLIC
  2. RIASTAP [Suspect]
     Active Substance: FIBRINOGEN HUMAN
     Indication: LIVER TRANSPLANT
     Dosage: 7 GRAM, TOT
     Route: 042
     Dates: start: 20200802, end: 20200802
  3. PROTAMINE [Concomitant]
     Active Substance: PROTAMINE
     Dosage: 15 MILLIGRAM
     Dates: start: 20200802
  4. TRANEXAMIC ACID. [Concomitant]
     Active Substance: TRANEXAMIC ACID
     Dosage: 1 GRAM
     Dates: start: 20200802

REACTIONS (4)
  - Drug ineffective for unapproved indication [Recovered/Resolved]
  - No adverse event [Unknown]
  - Product use in unapproved indication [Unknown]
  - Coagulopathy [Recovered/Resolved]

NARRATIVE: CASE EVENT DATE: 20200802
